FAERS Safety Report 13895267 (Version 1)
Quarter: 2017Q3

REPORT INFORMATION
  Report Type: Report from Study
  Country: None (occurrence: BR)
  Receive Date: 20170823
  Receipt Date: 20170823
  Transmission Date: 20171127
  Serious: Yes (Other)
  Sender: FDA-Public Use
  Company Number: BR-ABBVIE-17K-020-2075691-00

PATIENT
  Age: 38 Year
  Sex: Female
  Weight: 66 kg

DRUGS (2)
  1. HUMIRA [Suspect]
     Active Substance: ADALIMUMAB
     Indication: RHEUMATOID ARTHRITIS
     Route: 058
     Dates: start: 20170511
  2. OMEPRAZOLE. [Concomitant]
     Active Substance: OMEPRAZOLE
     Indication: DYSPEPSIA

REACTIONS (21)
  - Dysphonia [Recovered/Resolved]
  - Diarrhoea [Not Recovered/Not Resolved]
  - Injection site pruritus [Recovered/Resolved]
  - Influenza [Not Recovered/Not Resolved]
  - Catarrh [Recovered/Resolved]
  - Injection site pain [Not Recovered/Not Resolved]
  - Peripheral swelling [Recovering/Resolving]
  - Drug effect incomplete [Unknown]
  - Sinusitis [Not Recovered/Not Resolved]
  - Hypoaesthesia [Recovered/Resolved]
  - Arthralgia [Recovering/Resolving]
  - Immunodeficiency [Not Recovered/Not Resolved]
  - Fibromyalgia [Not Recovered/Not Resolved]
  - Pain in extremity [Recovering/Resolving]
  - Influenza [Recovered/Resolved]
  - Injection site erythema [Recovering/Resolving]
  - Blood pressure increased [Recovered/Resolved]
  - Sinusitis [Recovered/Resolved]
  - Haematemesis [Recovering/Resolving]
  - Dysphonia [Not Recovered/Not Resolved]
  - Neck pain [Recovered/Resolved]

NARRATIVE: CASE EVENT DATE: 2017
